FAERS Safety Report 7809732-6 (Version None)
Quarter: 2011Q4

REPORT INFORMATION
  Report Type: 
  Country: None (occurrence: None)
  Receive Date: 20111012
  Receipt Date: 20110907
  Transmission Date: 20120403
  Serious: Yes (Other)
  Sender: FDA-Public Use
  Company Number: BE-GLAXOSMITHKLINE-B0746481A

PATIENT
  Sex: Male
  Weight: 84 kg

DRUGS (1)
  1. NICOTINE [Suspect]
     Indication: EX-TOBACCO USER
     Dosage: 21MG PER DAY
     Route: 062
     Dates: start: 20110824, end: 20110825

REACTIONS (5)
  - OEDEMA PERIPHERAL [None]
  - MUSCULOSKELETAL STIFFNESS [None]
  - APPLICATION SITE SWELLING [None]
  - MALAISE [None]
  - PALPITATIONS [None]
